FAERS Safety Report 7740185-2 (Version None)
Quarter: 2011Q3

REPORT INFORMATION
  Report Type: 
  Country: None (occurrence: None)
  Receive Date: 20110909
  Receipt Date: 20110905
  Transmission Date: 20111222
  Serious: Yes (Life-Threatening, Other)
  Sender: FDA-Public Use
  Company Number: JP-B.I. PHARMACEUTICALS,INC./RIDGEFIELD-2011-BP-19507NB

PATIENT
  Sex: Male
  Weight: 57 kg

DRUGS (4)
  1. NORVASC [Concomitant]
     Indication: HYPERTENSION
     Dosage: 5 MG
     Route: 048
  2. CARVEDILOL [Concomitant]
     Dosage: UNK
     Route: 048
  3. TELMISARTAN AND HYDROCHLOROTHIAZIDE [Suspect]
     Indication: HYPERTENSION
     Dosage: 1DF, TELMISARTAN40MG+HYDROCHLOROTHIAZIDE12.5MG
     Route: 048
     Dates: start: 20100326
  4. CARVEDILOL [Concomitant]
     Indication: HYPERTENSION
     Dosage: 20 MG
     Route: 048

REACTIONS (3)
  - HYPERKALAEMIA [None]
  - RENAL IMPAIRMENT [None]
  - DIABETIC NEPHROPATHY [None]
